FAERS Safety Report 16050634 (Version 1)
Quarter: 2019Q1

REPORT INFORMATION
  Report Type: Spontaneous
  Country: US (occurrence: US)
  Receive Date: 20190308
  Receipt Date: 20190308
  Transmission Date: 20190418
  Serious: No
  Sender: FDA-Public Use
  Company Number: US-ASTRAZENECA-2019SE24930

PATIENT
  Sex: Female

DRUGS (1)
  1. GENERIC CRESTOR [Suspect]
     Active Substance: ROSUVASTATIN CALCIUM
     Dosage: GENERIC
     Route: 065

REACTIONS (3)
  - Stomatitis [Unknown]
  - Lip pain [Unknown]
  - Dry mouth [Unknown]
